FAERS Safety Report 16334745 (Version 1)
Quarter: 2019Q2

REPORT INFORMATION
  Report Type: Spontaneous
  Country: DK (occurrence: DK)
  Receive Date: 20190520
  Receipt Date: 20190520
  Transmission Date: 20190711
  Serious: Yes (Other)
  Sender: FDA-Public Use
  Company Number: DK-EXELIXIS-CABO-19021171

PATIENT
  Age: 68 Year
  Sex: Male

DRUGS (14)
  1. FERROUS FUMARATE [Concomitant]
     Active Substance: FERROUS FUMARATE
     Indication: MINERAL SUPPLEMENTATION
     Dosage: 1 DF, QD
     Route: 048
     Dates: start: 20180820
  2. CABOMETYX [Suspect]
     Active Substance: CABOZANTINIB S-MALATE
     Indication: RENAL CANCER
     Dosage: 60 MG, QD
     Route: 048
     Dates: start: 20180903
  3. LOPERAMIDE [Concomitant]
     Active Substance: LOPERAMIDE
     Indication: DIARRHOEA
     Dosage: STYRKE: 2 MG. DOSIS: 1 TABLET P., HOJST 8 TABLETTER DAGLIGT. ; AS NECESSARY
     Route: 048
     Dates: start: 20160530
  4. CLOPIDOGREL [Concomitant]
     Active Substance: CLOPIDOGREL BISULFATE
     Indication: THROMBOSIS PROPHYLAXIS
     Dosage: 75 MG, QD
     Route: 048
     Dates: start: 20140630
  5. AMLODIPINE [Concomitant]
     Active Substance: AMLODIPINE BESYLATE
     Indication: HYPERTENSION
     Dosage: 5 MG, QD
     Route: 048
     Dates: start: 20151019
  6. PANTOPRAZOLE [Concomitant]
     Active Substance: PANTOPRAZOLE
     Indication: GASTRIC ULCER
     Dosage: 40 MG, QD
     Route: 048
     Dates: start: 20181115
  7. MOVICOL [Concomitant]
     Active Substance: POLYETHYLENE GLYCOL 3350\POTASSIUM CHLORIDE\SODIUM BICARBONATE\SODIUM CHLORIDE
     Indication: CONSTIPATION
     Dosage: STYRKE: UKENDT. DOSIS: 1 BREV PN., HOJST 6 GANGE DAGLIGT. ; AS NECESSARY
     Route: 048
     Dates: start: 20180820, end: 20190218
  8. SODIUM PICOSULFATE [Concomitant]
     Active Substance: SODIUM PICOSULFATE
     Indication: CONSTIPATION
     Dosage: STYRKE: 7,5 MG. DOSIS: 10 DRABER PN., HOJST 2 GANGE DAGLIGT. ; AS NECESSARY
     Route: 048
     Dates: start: 20180820, end: 20190218
  9. CALCIUM OG D-VITAMIN [Concomitant]
     Indication: VITAMIN SUPPLEMENTATION
     Dosage: STYRKE: 400 MG + 19 MIKROGRAM (2 DF, QD)
     Route: 048
     Dates: start: 20180820
  10. PARACETAMOL [Concomitant]
     Active Substance: ACETAMINOPHEN
     Indication: PAIN
     Dosage: STYRKE: 500 MG. DOSIS: 2 TABLETTER PN. HOJST 3 GANGE DAGLIGT. ; AS NECESSARY
     Route: 048
     Dates: start: 20180820
  11. PREDNISOLONE. [Concomitant]
     Active Substance: PREDNISOLONE
     Indication: BLOOD CORTICOTROPHIN
     Dosage: 2.5 MG, QD
     Route: 048
     Dates: start: 20180830, end: 20190130
  12. TRAMADOL. [Concomitant]
     Active Substance: TRAMADOL
     Indication: PAIN
     Dosage: STYRKE: 50 MG. DOSIS: 1 TABLET PN., HOJST 4 GANGE DAGLIGT. ; AS NECESSARY
     Route: 048
     Dates: start: 20180820, end: 20190218
  13. DOMPERIDONE [Concomitant]
     Active Substance: DOMPERIDONE
     Indication: NAUSEA
     Dosage: STYRKE: 10 MG. DOSIS: 1 TABLET PN., HOJST 3 GANGE DAGLIGT. ; AS NECESSARY
     Route: 048
     Dates: start: 20180820
  14. LOSARTAN. [Concomitant]
     Active Substance: LOSARTAN
     Indication: HYPERTENSION
     Dosage: 25 MG, QD
     Route: 048
     Dates: start: 20171210

REACTIONS (1)
  - Angina pectoris [Not Recovered/Not Resolved]

NARRATIVE: CASE EVENT DATE: 20181008
